FAERS Safety Report 6249373-8 (Version None)
Quarter: 2009Q2

REPORT INFORMATION
  Report Type: 
  Country: None (occurrence: None)
  Receive Date: 20090629
  Receipt Date: 20090617
  Transmission Date: 20091009
  Serious: Yes (Hospitalization)
  Sender: FDA-Public Use
  Company Number: BR-BIOGENIDEC-2008BI028162

PATIENT
  Age: 12 Year
  Sex: Female
  Weight: 80 kg

DRUGS (2)
  1. AVONEX [Suspect]
     Indication: MULTIPLE SCLEROSIS
     Route: 030
     Dates: start: 20080704
  2. UNSPECIFIED CORTICOSTEROIDS [Concomitant]

REACTIONS (11)
  - DRUG INEFFECTIVE [None]
  - INFLUENZA [None]
  - INFLUENZA LIKE ILLNESS [None]
  - MENTAL DISORDER [None]
  - MULTIPLE SCLEROSIS RELAPSE [None]
  - NASOPHARYNGITIS [None]
  - NUCLEAR MAGNETIC RESONANCE IMAGING ABNORMAL [None]
  - PARALYSIS [None]
  - TREMOR [None]
  - VOMITING [None]
  - WEIGHT INCREASED [None]
